FAERS Safety Report 6343668-5 (Version None)
Quarter: 2009Q3

REPORT INFORMATION
  Report Type: 
  Country: None (occurrence: None)
  Receive Date: 20090903
  Receipt Date: 20090903
  Transmission Date: 20100115
  Serious: No
  Sender: FDA-Public Use
  Company Number: None

PATIENT
  Age: 73 Year
  Sex: Female
  Weight: 48.9885 kg

DRUGS (4)
  1. EXFORGE [Suspect]
     Indication: BLOOD PRESSURE DECREASED
     Dosage: 1 PER DAY - EVENT ON 5TH DAY BY MOUTH
     Route: 048
     Dates: start: 20090810
  2. EXFORGE [Suspect]
     Indication: BLOOD PRESSURE DECREASED
     Dosage: 1 PER DAY - EVENT ON 5TH DAY BY MOUTH
     Route: 048
     Dates: start: 20090811
  3. EXFORGE [Suspect]
     Indication: BLOOD PRESSURE DECREASED
     Dosage: 1 PER DAY - EVENT ON 5TH DAY BY MOUTH
     Route: 048
     Dates: start: 20090812
  4. EXFORGE [Suspect]
     Indication: BLOOD PRESSURE DECREASED
     Dosage: 1 PER DAY - EVENT ON 5TH DAY BY MOUTH
     Route: 048
     Dates: start: 20090813

REACTIONS (6)
  - ARTHRALGIA [None]
  - BLOOD TEST ABNORMAL [None]
  - EPISTAXIS [None]
  - HAEMORRHAGE [None]
  - INFLUENZA LIKE ILLNESS [None]
  - PYREXIA [None]
